FAERS Safety Report 25112659 (Version 1)
Quarter: 2025Q1

REPORT INFORMATION
  Report Type: Spontaneous
  Country: US (occurrence: None)
  Receive Date: 20250321
  Receipt Date: 20250321
  Transmission Date: 20250409
  Serious: Yes (Life-Threatening, Hospitalization)
  Sender: FDA-CTU
  Company Number: None

PATIENT
  Age: 42 Year
  Sex: Female
  Weight: 94.5 kg

DRUGS (5)
  1. ZEPBOUND [Suspect]
     Active Substance: TIRZEPATIDE
     Indication: Weight decreased
     Dates: start: 20250101, end: 20250204
  2. METOPROLOL [Concomitant]
     Active Substance: METOPROLOL
  3. LITHIUM [Concomitant]
     Active Substance: LITHIUM
  4. FLUVOXAMINE [Concomitant]
     Active Substance: FLUVOXAMINE
  5. LAMOTRIGINE [Concomitant]
     Active Substance: LAMOTRIGINE

REACTIONS (3)
  - Cholecystitis acute [None]
  - Procedure aborted [None]
  - Surgical procedure repeated [None]

NARRATIVE: CASE EVENT DATE: 20250303
